FAERS Safety Report 6896647-3 (Version None)
Quarter: 2010Q3

REPORT INFORMATION
  Report Type: 
  Country: None (occurrence: None)
  Receive Date: 20100802
  Receipt Date: 20070118
  Transmission Date: 20110219
  Serious: No
  Sender: FDA-Public Use
  Company Number: US-PFIZER INC-2007005590

PATIENT
  Sex: Male
  Weight: 97.52 kg

DRUGS (1)
  1. LYRICA [Suspect]
     Indication: NEURALGIA

REACTIONS (3)
  - MUSCLE TWITCHING [None]
  - PARAESTHESIA [None]
  - TREMOR [None]
